FAERS Safety Report 4893285-9 (Version None)
Quarter: 2006Q1

REPORT INFORMATION
  Report Type: 
  Country: None (occurrence: None)
  Receive Date: 20060124
  Receipt Date: 20060110
  Transmission Date: 20060701
  Serious: Yes (Hospitalization, Other)
  Sender: FDA-Public Use
  Company Number: 8010019

PATIENT
  Age: 57 Year
  Sex: Male
  Weight: 113.63 kg

DRUGS (3)
  1. KEPPRA [Suspect]
     Indication: CONVULSION
     Dosage: PO
     Route: 048
     Dates: start: 20040930
  2. CARBATROL [Concomitant]
  3. DEPAKOTE [Concomitant]

REACTIONS (3)
  - ANGINA PECTORIS [None]
  - CARDIAC VALVE DISEASE [None]
  - MITRAL VALVE DISEASE [None]
